FAERS Safety Report 5398420-4 (Version None)
Quarter: 2007Q3

REPORT INFORMATION
  Report Type: 
  Country: None (occurrence: None)
  Receive Date: 20070726
  Receipt Date: 20070312
  Transmission Date: 20080115
  Serious: No
  Sender: FDA-Public Use
  Company Number: US-AMGEN-KDL214807

PATIENT
  Sex: Female

DRUGS (1)
  1. PROCRIT [Suspect]
     Indication: ANAEMIA
     Dates: start: 20060101

REACTIONS (4)
  - INJECTION SITE IRRITATION [None]
  - INJECTION SITE PAIN [None]
  - PYREXIA [None]
  - VOMITING [None]
